FAERS Safety Report 8240448-0 (Version None)
Quarter: 2012Q1

REPORT INFORMATION
  Report Type: 
  Country: None (occurrence: None)
  Receive Date: 20120328
  Receipt Date: 20120320
  Transmission Date: 20120608
  Serious: Yes (Hospitalization, Other)
  Sender: FDA-Public Use
  Company Number: GB-CUBIST-2011S1000428

PATIENT
  Sex: Male

DRUGS (1)
  1. CUBICIN [Suspect]
     Indication: CELLULITIS
     Dosage: DOSE UNIT:3
     Route: 042

REACTIONS (3)
  - VOMITING [None]
  - DIARRHOEA [None]
  - TYPE I HYPERSENSITIVITY [None]
